FAERS Safety Report 23424834 (Version 1)
Quarter: 2024Q1

REPORT INFORMATION
  Report Type: Spontaneous
  Country: IL (occurrence: IL)
  Receive Date: 20240121
  Receipt Date: 20240121
  Transmission Date: 20240410
  Serious: Yes (Death, Life-Threatening, Hospitalization, Other)
  Sender: FDA-Public Use
  Company Number: IL-AMGEN-ISRSP2024007668

PATIENT
  Age: 31 Year
  Sex: Female

DRUGS (7)
  1. BEVACIZUMAB [Suspect]
     Active Substance: BEVACIZUMAB
     Indication: Triple negative breast cancer
     Dosage: UNK
     Route: 065
     Dates: start: 202110
  2. DOXORUBICIN [Concomitant]
     Active Substance: DOXORUBICIN
     Dosage: UNK
     Route: 065
     Dates: start: 202006
  3. DISULFIRAM [Concomitant]
     Active Substance: DISULFIRAM
     Dosage: UNK
     Route: 065
     Dates: start: 202110
  4. CYCLOPHOSPHAMIDE [Concomitant]
     Active Substance: CYCLOPHOSPHAMIDE
     Dosage: UNK
     Route: 065
     Dates: start: 202006
  5. CYCLOPHOSPHAMIDE [Concomitant]
     Active Substance: CYCLOPHOSPHAMIDE
     Dosage: 3000 MILLIGRAM, QD
     Route: 065
  6. FLUDARABINE [Concomitant]
     Active Substance: FLUDARABINE PHOSPHATE
     Dosage: 45 MILLIGRAM, QD FOR 5 DAYS
     Route: 065
  7. OLAPARIB [Concomitant]
     Active Substance: OLAPARIB
     Dosage: UNK
     Route: 065

REACTIONS (7)
  - Triple negative breast cancer [Fatal]
  - Cytokine storm [Unknown]
  - Hypotensive crisis [Unknown]
  - Renal failure [Unknown]
  - Left ventricular failure [Unknown]
  - Pulmonary congestion [Unknown]
  - Myocarditis [Unknown]
